FAERS Safety Report 21839390 (Version 1)
Quarter: 2023Q1

REPORT INFORMATION
  Report Type: Spontaneous
  Country: US (occurrence: US)
  Receive Date: 20230109
  Receipt Date: 20230109
  Transmission Date: 20230417
  Serious: No
  Sender: FDA-Public Use
  Company Number: US-KARYOPHARM-2022KPT001562

PATIENT

DRUGS (18)
  1. XPOVIO [Suspect]
     Active Substance: SELINEXOR
     Indication: Plasma cell myeloma
     Dosage: 100 MG, WEEKLY
     Route: 048
     Dates: start: 20221117
  2. XPOVIO [Suspect]
     Active Substance: SELINEXOR
     Dosage: 60 MG, 2X/WEEK
     Route: 048
     Dates: start: 2022
  3. ACYCLOVIR ABBOTT VIAL [Concomitant]
  4. AMIODARONE [Concomitant]
     Active Substance: AMIODARONE
  5. ELIQUIS [Concomitant]
     Active Substance: APIXABAN
  6. ENTRESTO [Concomitant]
     Active Substance: SACUBITRIL\VALSARTAN
  7. FENTANYL [Concomitant]
     Active Substance: FENTANYL
  8. INSULIN GLARGINE [Concomitant]
     Active Substance: INSULIN GLARGINE
  9. INSULIN LISPRO [Concomitant]
     Active Substance: INSULIN LISPRO
  10. LASIX [Concomitant]
     Active Substance: FUROSEMIDE
  11. METOPROLOL [Concomitant]
     Active Substance: METOPROLOL
  12. NALOXONE [Concomitant]
     Active Substance: NALOXONE
  13. NITROGLYCERIN [Concomitant]
     Active Substance: NITROGLYCERIN
  14. OXYCODONE [Concomitant]
     Active Substance: OXYCODONE
  15. PRAVASTATIN [Concomitant]
     Active Substance: PRAVASTATIN
  16. PROCHLORPERAZINE [Concomitant]
     Active Substance: PROCHLORPERAZINE
  17. SULFAMETHOXAZOLE AND TRIMETHOPRIM [Concomitant]
     Active Substance: SULFAMETHOXAZOLE\TRIMETHOPRIM
  18. POTASSIUM CHLORIDE [Concomitant]
     Active Substance: POTASSIUM CHLORIDE

REACTIONS (2)
  - Blood calcium increased [Unknown]
  - Influenza [Unknown]

NARRATIVE: CASE EVENT DATE: 20220101
